FAERS Safety Report 11208987 (Version 2)
Quarter: 2015Q2

REPORT INFORMATION
  Report Type: Spontaneous
  Country: IT (occurrence: IT)
  Receive Date: 20150622
  Receipt Date: 20150624
  Transmission Date: 20150821
  Serious: Yes (Hospitalization)
  Sender: FDA-Public Use
  Company Number: PHHY2015IT072818

PATIENT
  Age: 92 Year
  Sex: Female

DRUGS (6)
  1. TRIATEC [Concomitant]
     Active Substance: RAMIPRIL
     Indication: PRODUCT USED FOR UNKNOWN INDICATION
     Dosage: 2.5 MG, UNK
     Route: 048
  2. MUSCORIL [Suspect]
     Active Substance: THIOCOLCHICOSIDE
     Indication: NEURALGIA
     Dosage: 1 DF (4MG/ 2ML), QD
     Route: 030
     Dates: start: 20150130, end: 20150202
  3. TORA-DOL [Suspect]
     Active Substance: KETOROLAC TROMETHAMINE
     Indication: NEURALGIA
     Dosage: 1 DF, QD
     Route: 030
     Dates: start: 20150130, end: 20150202
  4. PARACETAMOL [Suspect]
     Active Substance: ACETAMINOPHEN
     Indication: NEURALGIA
     Dosage: 2 G, QD
     Route: 048
     Dates: start: 20150130, end: 20150202
  5. CODEINE PHOSPHATE [Suspect]
     Active Substance: CODEINE PHOSPHATE
     Indication: NEURALGIA
     Dosage: 1 DF, QD
     Route: 048
     Dates: start: 20150130, end: 20150202
  6. NORVASC [Concomitant]
     Active Substance: AMLODIPINE BESYLATE
     Indication: PRODUCT USED FOR UNKNOWN INDICATION
     Route: 048

REACTIONS (4)
  - Abdominal pain [Unknown]
  - Diarrhoea [Unknown]
  - Decreased appetite [Unknown]
  - Hepatitis [Unknown]

NARRATIVE: CASE EVENT DATE: 20150202
